FAERS Safety Report 18482672 (Version 6)
Quarter: 2021Q2

REPORT INFORMATION
  Report Type: Report from Study
  Country: US (occurrence: US)
  Receive Date: 20201110
  Receipt Date: 20210604
  Transmission Date: 20210717
  Serious: Yes (Hospitalization, Other)
  Sender: FDA-Public Use
  Company Number: NVSC2020US300798

PATIENT
  Age: 46 Year
  Sex: Male
  Weight: 149.66 kg

DRUGS (1)
  1. ENTRESTO [Suspect]
     Active Substance: SACUBITRIL\VALSARTAN
     Indication: CARDIAC FAILURE
     Dosage: 1 DF (49/51 MG), BID
     Route: 048
     Dates: start: 20201102

REACTIONS (8)
  - Claustrophobia [Unknown]
  - Dizziness [Unknown]
  - Weight decreased [Unknown]
  - Hypophagia [Unknown]
  - Injury [Unknown]
  - Peripheral coldness [Unknown]
  - Dyspnoea [Unknown]
  - Hypotension [Unknown]

NARRATIVE: CASE EVENT DATE: 2020
